FAERS Safety Report 24197637 (Version 1)
Quarter: 2024Q3

REPORT INFORMATION
  Report Type: Spontaneous
  Country: US (occurrence: US)
  Receive Date: 20240811
  Receipt Date: 20240811
  Transmission Date: 20241017
  Serious: Yes (Other)
  Sender: SANOFI AVENTIS
  Company Number: US-SA-SAC20240808001172

PATIENT
  Sex: Female

DRUGS (1)
  1. DUPIXENT [Suspect]
     Active Substance: DUPILUMAB
     Indication: Dermatitis atopic
     Dosage: 300 MG, QOW
     Route: 058
     Dates: start: 202303

REACTIONS (9)
  - Cardiac flutter [Unknown]
  - Somnolence [Unknown]
  - Dry mouth [Unknown]
  - Blepharospasm [Unknown]
  - Sensation of foreign body [Unknown]
  - Dyspnoea [Unknown]
  - Chest discomfort [Unknown]
  - Eye irritation [Unknown]
  - Eye pruritus [Unknown]
